FAERS Safety Report 4785136-8 (Version None)
Quarter: 2005Q3

REPORT INFORMATION
  Report Type: 
  Country: None (occurrence: None)
  Receive Date: 20050928
  Receipt Date: 20050916
  Transmission Date: 20060218
  Serious: Yes (Other)
  Sender: FDA-Public Use
  Company Number: 2005-0089-EUR

PATIENT
  Age: 26 Year
  Sex: Female

DRUGS (1)
  1. PRILOCAIN OCTA     (CITANEST-OCTOPRESSIN) [Suspect]
     Dosage: ONCE INJECTION
     Dates: start: 20030602, end: 20030602

REACTIONS (1)
  - BRONCHOSPASM [None]
